FAERS Safety Report 11838364 (Version 1)
Quarter: 2015Q4

REPORT INFORMATION
  Report Type: Spontaneous
  Country: IT (occurrence: IT)
  Receive Date: 20151215
  Receipt Date: 20151215
  Transmission Date: 20160305
  Serious: Yes (Death, Hospitalization, Other)
  Sender: FDA-Public Use
  Company Number: IT-GILEAD-2015-0187607

PATIENT
  Age: 56 Year
  Sex: Female
  Weight: 497 kg

DRUGS (6)
  1. CEFIXORAL [Concomitant]
     Active Substance: CEFIXIME
     Indication: BRONCHITIS
     Dosage: 400 MG, UNK
  2. HARVONI [Suspect]
     Active Substance: LEDIPASVIR\SOFOSBUVIR
     Indication: HEPATITIS C
     Dosage: 1 DF, QD
     Route: 048
     Dates: start: 20150904, end: 20151015
  3. LUVION                             /00252501/ [Concomitant]
     Active Substance: CANRENONE
     Indication: PRODUCT USED FOR UNKNOWN INDICATION
     Dosage: 200 MG, UNK
     Route: 048
  4. YOVIS [Concomitant]
     Indication: PRODUCT USED FOR UNKNOWN INDICATION
     Dosage: UNK
  5. DELTACORTENE [Concomitant]
     Active Substance: PREDNISONE
     Indication: PRODUCT USED FOR UNKNOWN INDICATION
     Dosage: 5 MG, UNK
  6. KLACID                             /00984601/ [Concomitant]
     Active Substance: CLARITHROMYCIN
     Indication: CORYNEBACTERIUM SEPSIS
     Dosage: 1000 MG, UNK
     Route: 048

REACTIONS (5)
  - Ascites [Fatal]
  - Liver disorder [Fatal]
  - Portal hypertension [Fatal]
  - Hepatic failure [Fatal]
  - Hepatorenal syndrome [Fatal]

NARRATIVE: CASE EVENT DATE: 20150928
